FAERS Safety Report 18193369 (Version 1)
Quarter: 2020Q3

REPORT INFORMATION
  Report Type: Spontaneous
  Country: FR (occurrence: FR)
  Receive Date: 20200825
  Receipt Date: 20200825
  Transmission Date: 20201103
  Serious: Yes (Hospitalization)
  Sender: FDA-Public Use
  Company Number: FR-PFIZER INC-2020325495

PATIENT
  Age: 52 Year
  Sex: Female
  Weight: 145 kg

DRUGS (2)
  1. DOLIPRANE [Concomitant]
     Active Substance: ACETAMINOPHEN
     Indication: PAIN
     Dosage: 4 G, 1X/DAY
     Route: 048
     Dates: start: 201910, end: 20200714
  2. ADVIL [Suspect]
     Active Substance: IBUPROFEN
     Indication: PAIN
     Dosage: 1600 MG, 1X/DAY
     Route: 048
     Dates: start: 201910, end: 20200714

REACTIONS (4)
  - Duodenitis [Not Recovered/Not Resolved]
  - Gastritis [Not Recovered/Not Resolved]
  - Overdose [Unknown]
  - Acute kidney injury [Recovering/Resolving]

NARRATIVE: CASE EVENT DATE: 201910
